FAERS Safety Report 21408161 (Version 1)
Quarter: 2022Q4

REPORT INFORMATION
  Report Type: Spontaneous
  Country: HR (occurrence: None)
  Receive Date: 20221004
  Receipt Date: 20221004
  Transmission Date: 20230113
  Serious: Yes (Other)
  Sender: FDA-Public Use
  Company Number: HR-ROCHE-3193758

PATIENT
  Sex: Female

DRUGS (1)
  1. RIVOTRIL [Suspect]
     Active Substance: CLONAZEPAM
     Indication: Completed suicide
     Dosage: RIVOTRIL DOSE: 30 TBL A 2 MG
     Route: 048
     Dates: start: 20220812, end: 20220812

REACTIONS (3)
  - Intentional overdose [Unknown]
  - Psychomotor retardation [Unknown]
  - Suicide attempt [Unknown]

NARRATIVE: CASE EVENT DATE: 20220812
